FAERS Safety Report 9837925 (Version 4)
Quarter: 2014Q3

REPORT INFORMATION
  Report Type: Spontaneous
  Country: US (occurrence: US)
  Receive Date: 20140123
  Receipt Date: 20140715
  Transmission Date: 20150326
  Serious: Yes (Hospitalization)
  Sender: FDA-Public Use
  Company Number: US-BAYER-2014-010102

PATIENT
  Age: 32 Year
  Sex: Female
  Weight: 104.31 kg

DRUGS (4)
  1. METFORMIN [Concomitant]
     Active Substance: METFORMIN HYDROCHLORIDE
     Indication: OBESITY
     Dosage: UNK
     Dates: start: 2011
  2. MIRENA [Suspect]
     Active Substance: LEVONORGESTREL
     Dosage: 20 MCG/24HR, CONT
     Route: 015
     Dates: start: 20070226, end: 20130125
  3. TRAMADOL [Concomitant]
     Active Substance: TRAMADOL
  4. PHENTERMINE [Concomitant]
     Active Substance: PHENTERMINE
     Indication: WEIGHT DECREASED
     Dosage: UNK
     Dates: start: 2011

REACTIONS (10)
  - Pelvic pain [None]
  - Injury [None]
  - Embedded device [None]
  - Pyelonephritis acute [None]
  - Device difficult to use [None]
  - Device misuse [None]
  - Emotional distress [None]
  - Device use error [None]
  - Device issue [None]
  - Pyrexia [None]

NARRATIVE: CASE EVENT DATE: 2007
